FAERS Safety Report 8262285-3 (Version None)
Quarter: 2012Q2

REPORT INFORMATION
  Report Type: 
  Country: None (occurrence: None)
  Receive Date: 20120405
  Receipt Date: 20120329
  Transmission Date: 20120825
  Serious: Yes (Hospitalization, Other)
  Sender: FDA-Public Use
  Company Number: VE-ELI_LILLY_AND_COMPANY-VE201204000612

PATIENT
  Age: 56 Year
  Sex: Male

DRUGS (2)
  1. EFFIENT [Suspect]
     Dosage: 10 MG, UNKNOWN
  2. EFFIENT [Suspect]
     Dosage: 60 MG, SINGLE

REACTIONS (1)
  - RENAL FAILURE ACUTE [None]
